FAERS Safety Report 8618623-2 (Version None)
Quarter: 2012Q3

REPORT INFORMATION
  Report Type: 
  Country: None (occurrence: None)
  Receive Date: 20120824
  Receipt Date: 20120810
  Transmission Date: 20120928
  Serious: No
  Sender: FDA-Public Use
  Company Number: US-009507513-1208USA005872

PATIENT

DRUGS (2)
  1. LAMICTAL [Concomitant]
  2. SAPHRIS [Suspect]
     Indication: BIPOLAR DISORDER
     Dosage: RAPID DISSOLVE 5
     Route: 060
     Dates: start: 20120201, end: 20120808

REACTIONS (1)
  - HYPOAESTHESIA ORAL [None]
